FAERS Safety Report 9622497 (Version 2)
Quarter: 2013Q4

REPORT INFORMATION
  Report Type: Report from Study
  Country: US (occurrence: US)
  Receive Date: 20131015
  Receipt Date: 20131105
  Transmission Date: 20140711
  Serious: Yes (Death)
  Sender: FDA-Public Use
  Company Number: US-ROCHE-1288853

PATIENT
  Age: 76 Year
  Sex: Male

DRUGS (2)
  1. AVASTIN [Suspect]
     Indication: COLORECTAL CANCER METASTATIC
     Dosage: 15 MG/KG
     Route: 065
  2. 5-FU [Concomitant]
     Route: 065

REACTIONS (2)
  - Death [Fatal]
  - Paraesthesia [Unknown]
